FAERS Safety Report 4833381-5 (Version None)
Quarter: 2005Q4

REPORT INFORMATION
  Report Type: 
  Country: None (occurrence: None)
  Receive Date: 20051117
  Receipt Date: 20051108
  Transmission Date: 20060501
  Serious: Yes (Hospitalization)
  Sender: FDA-Public Use
  Company Number: HQWYE455008NOV05

PATIENT
  Sex: Male

DRUGS (3)
  1. CORDARONE [Suspect]
     Indication: ARRHYTHMIA
     Dosage: 200 MG, ORAL
     Route: 048
     Dates: start: 20030101
  2. MARCUMAR [Concomitant]
  3. COVERSUM                   (PERINDOPRIL) [Concomitant]

REACTIONS (3)
  - HYPERTHYROIDISM [None]
  - PROTHROMBIN TIME PROLONGED [None]
  - PROTHROMBIN TIME RATIO DECREASED [None]
